FAERS Safety Report 19768144 (Version 1)
Quarter: 2021Q3

REPORT INFORMATION
  Report Type: Spontaneous
  Country: US (occurrence: US)
  Receive Date: 20210827
  Receipt Date: 20210827
  Transmission Date: 20211014
  Serious: Yes (Other)
  Sender: FDA-Public Use
  Company Number: None

PATIENT
  Sex: Female

DRUGS (1)
  1. GLO SCIENCE PROFESSIONAL CHAIRSIDE WHITENING SYSTEM 30% PEROXIDE [Suspect]
     Active Substance: HYDROGEN PEROXIDE
     Indication: DENTAL DISORDER PROPHYLAXIS

REACTIONS (4)
  - Gingival discomfort [None]
  - Accidental exposure to product [None]
  - Wrong technique in product usage process [None]
  - Oral discomfort [None]

NARRATIVE: CASE EVENT DATE: 20210506
